FAERS Safety Report 10079966 (Version 2)
Quarter: 2014Q2

REPORT INFORMATION
  Report Type: Spontaneous
  Country: US (occurrence: US)
  Receive Date: 20140415
  Receipt Date: 20140415
  Transmission Date: 20141212
  Serious: No
  Sender: FDA-Public Use
  Company Number: US-ASTRAZENECA-2014SE21277

PATIENT
  Age: 22 Year
  Sex: Female

DRUGS (2)
  1. PRILOSEC OTC [Suspect]
     Route: 048
     Dates: start: 20120322, end: 20120323
  2. PRENATAL VITAMINS [Concomitant]

REACTIONS (2)
  - Exposure during pregnancy [Unknown]
  - Nausea [Unknown]
